FAERS Safety Report 6264257-7 (Version None)
Quarter: 2009Q3

REPORT INFORMATION
  Report Type: 
  Country: None (occurrence: None)
  Receive Date: 20090710
  Receipt Date: 20090706
  Transmission Date: 20100115
  Serious: Yes (Life-Threatening, Hospitalization)
  Sender: FDA-Public Use
  Company Number: DE-ASTRAZENECA-2009PK01521

PATIENT
  Age: 24993 Day
  Sex: Female
  Weight: 53 kg

DRUGS (4)
  1. ARIMIDEX [Suspect]
     Indication: BREAST CANCER
     Route: 048
     Dates: start: 20061127, end: 20080325
  2. SIMVASTATIN [Suspect]
     Indication: HYPERCHOLESTEROLAEMIA
     Route: 048
     Dates: end: 20080325
  3. ZOMETA [Concomitant]
     Indication: OSTEOPOROSIS
     Dosage: 4 MG EVERY 3-4 WEEKS
     Route: 042
     Dates: start: 20071211
  4. METOPROLOL SUCCINATE [Concomitant]
     Indication: ATRIAL FIBRILLATION
     Route: 048
     Dates: start: 20061001

REACTIONS (2)
  - LIVER DISORDER [None]
  - MYOPATHY TOXIC [None]
